FAERS Safety Report 6201827-6 (Version None)
Quarter: 2009Q2

REPORT INFORMATION
  Report Type: 
  Country: None (occurrence: None)
  Receive Date: 20090526
  Receipt Date: 20090513
  Transmission Date: 20091009
  Serious: Yes (Hospitalization, Other)
  Sender: FDA-Public Use
  Company Number: CH-ELI_LILLY_AND_COMPANY-CH200712002863

PATIENT
  Age: 50 Year
  Sex: Male

DRUGS (9)
  1. ZYPREXA [Suspect]
     Indication: PARANOID PERSONALITY DISORDER
     Dosage: 5 MG, DAILY (1/D)
     Route: 048
     Dates: start: 20071011, end: 20071111
  2. ZYPREXA [Suspect]
     Dosage: 2.5 MG, DAILY (1/D)
     Route: 048
     Dates: start: 20071101
  3. SIMVASTATIN [Concomitant]
     Indication: HYPERLIPIDAEMIA
     Dosage: 20 MG, DAILY (1/D)
     Route: 048
  4. DIAMICRON [Concomitant]
     Indication: TYPE 2 DIABETES MELLITUS
     Dosage: 60 MG, DAILY (1/D)
     Route: 048
  5. TRITTICO [Concomitant]
     Indication: DEPRESSION
     Dosage: 50 MG, DAILY (1/D)
     Route: 048
     Dates: start: 20071017, end: 20071021
  6. TRITTICO [Concomitant]
     Dosage: 100 MG, DAILY (1/D)
     Route: 048
     Dates: start: 20071022, end: 20071026
  7. TRITTICO [Concomitant]
     Dosage: 200 MG, DAILY (1/D)
     Route: 048
     Dates: start: 20071027, end: 20071112
  8. TRITTICO [Concomitant]
     Dosage: 100 MG, DAILY (1/D)
     Route: 048
     Dates: start: 20071113, end: 20071101
  9. TRITTICO [Concomitant]
     Dosage: 200 MG, DAILY (1/D)
     Dates: start: 20071101

REACTIONS (13)
  - BACK PAIN [None]
  - BLOOD CREATINE PHOSPHOKINASE INCREASED [None]
  - BLOOD GLUCOSE INCREASED [None]
  - BODY TEMPERATURE INCREASED [None]
  - EXTENSOR PLANTAR RESPONSE [None]
  - EXTRAPYRAMIDAL DISORDER [None]
  - FALL [None]
  - HYPERHIDROSIS [None]
  - LEUKOCYTOSIS [None]
  - NEUROLEPTIC MALIGNANT SYNDROME [None]
  - PLEUROTHOTONUS [None]
  - PSYCHOMOTOR HYPERACTIVITY [None]
  - TACHYCARDIA [None]
